FAERS Safety Report 6477706-6 (Version None)
Quarter: 2009Q4

REPORT INFORMATION
  Report Type: 
  Country: None (occurrence: None)
  Receive Date: 20091207
  Receipt Date: 20091130
  Transmission Date: 20100525
  Serious: Yes (Other)
  Sender: FDA-Public Use
  Company Number: GB-PFIZER INC-2009280446

PATIENT
  Age: 67 Year
  Sex: Female
  Weight: 86 kg

DRUGS (3)
  1. CHAMPIX [Suspect]
     Dosage: 500 UG, 2X/DAY
     Dates: start: 20090909, end: 20091008
  2. CHAMPIX [Suspect]
     Dosage: 500 UG, UNK
     Dates: start: 20090909, end: 20091008
  3. ATENOLOL [Concomitant]
     Dosage: 25 MG, UNK
     Route: 048
     Dates: start: 19991020

REACTIONS (2)
  - INTRAOCULAR PRESSURE INCREASED [None]
  - NIGHTMARE [None]
